FAERS Safety Report 8586454-8 (Version None)
Quarter: 2012Q3

REPORT INFORMATION
  Report Type: 
  Country: None (occurrence: None)
  Receive Date: 20120810
  Receipt Date: 20120802
  Transmission Date: 20120928
  Serious: No
  Sender: FDA-Public Use
  Company Number: US-ASTRAZENECA-2010SE11665

PATIENT
  Age: 60 Year
  Sex: Female
  Weight: 65.8 kg

DRUGS (6)
  1. SEROQUEL [Suspect]
     Route: 048
  2. AMITRIPTYLINE HCL [Concomitant]
  3. LEVOTHYROXINE SODIUM [Concomitant]
  4. SEROQUEL [Suspect]
     Indication: BIPOLAR DISORDER
     Route: 048
     Dates: start: 20070101, end: 20100224
  5. PRAVASTATIN [Concomitant]
  6. ASPIRIN [Concomitant]

REACTIONS (4)
  - TREMOR [None]
  - FEELING JITTERY [None]
  - DRUG DOSE OMISSION [None]
  - MIGRAINE [None]
